FAERS Safety Report 6192262-8 (Version None)
Quarter: 2009Q2

REPORT INFORMATION
  Report Type: 
  Country: None (occurrence: None)
  Receive Date: 20090515
  Receipt Date: 20090511
  Transmission Date: 20091009
  Serious: Yes (Hospitalization, Other)
  Sender: FDA-Public Use
  Company Number: PHHO2009BR05824

PATIENT
  Sex: Female

DRUGS (3)
  1. NEORAL [Suspect]
     Indication: RENAL TRANSPLANT
     Dosage: 150 MG, QD
     Route: 048
     Dates: start: 20090305
  2. CELLCEPT [Concomitant]
     Indication: RENAL TRANSPLANT
     Dosage: 2000 MG, QD
     Dates: start: 20090203
  3. PREDNISONE [Concomitant]
     Indication: RENAL TRANSPLANT
     Dosage: UNK
     Route: 048
     Dates: start: 20080611

REACTIONS (6)
  - ANAEMIA [None]
  - GASTRIC POLYPS [None]
  - URINARY TRACT INFECTION BACTERIAL [None]
  - URINE ABNORMALITY [None]
  - URINE OUTPUT DECREASED [None]
  - VOMITING [None]
